FAERS Safety Report 15256074 (Version 1)
Quarter: 2018Q3

REPORT INFORMATION
  Report Type: Spontaneous
  Country: AT (occurrence: AT)
  Receive Date: 20180808
  Receipt Date: 20180808
  Transmission Date: 20181010
  Serious: Yes (Death)
  Sender: FDA-Public Use
  Company Number: AT-PFIZER INC-2018314871

PATIENT
  Age: 76 Year
  Sex: Male

DRUGS (17)
  1. AMPHOTERICIN B. [Concomitant]
     Active Substance: AMPHOTERICIN B
     Indication: ANTIFUNGAL PROPHYLAXIS
     Dosage: 10 MG, 3X/DAY (EVERY 8 H)
     Route: 055
  2. MEROPENEM. [Concomitant]
     Active Substance: MEROPENEM
     Indication: PROPHYLAXIS
  3. PIPERACILLIN/TAZOBACTAM [Concomitant]
     Active Substance: PIPERACILLIN SODIUM\TAZOBACTAM SODIUM
     Indication: PROPHYLAXIS
  4. VORICONAZOLE. [Suspect]
     Active Substance: VORICONAZOLE
     Indication: ANTIFUNGAL TREATMENT
     Dosage: 300 MG, 2X/DAY (EVERY 12 HOURS)
  5. AVIBACTAM W/CEFTAZIDIME [Concomitant]
     Active Substance: AVIBACTAM SODIUM\CEFTAZIDIME
     Indication: PROPHYLAXIS
  6. GENTAMICIN. [Concomitant]
     Active Substance: GENTAMICIN
     Indication: PROPHYLAXIS
  7. TACROLIMUS. [Concomitant]
     Active Substance: TACROLIMUS
     Indication: IMMUNOSUPPRESSION
     Dosage: 0.1 MG/KG, UNK
  8. CEFEPIME [Concomitant]
     Active Substance: CEFEPIME HYDROCHLORIDE
     Indication: PROPHYLAXIS
  9. FILGRASTIM [Concomitant]
     Active Substance: FILGRASTIM
     Indication: NEUTROPENIA
     Dosage: 48 MIO IU/DAY
     Route: 058
  10. CIPROFLOXACIN. [Concomitant]
     Active Substance: CIPROFLOXACIN
     Indication: PROPHYLAXIS
  11. LINEZOLID. [Concomitant]
     Active Substance: LINEZOLID
     Indication: PROPHYLAXIS
  12. FLUCONAZOLE. [Concomitant]
     Active Substance: FLUCONAZOLE
     Indication: ANTIFUNGAL PROPHYLAXIS
     Dosage: 600 MG, 1X/DAY
     Route: 051
  13. SULFAMETROLE SODIUM W/TRIMETHOPRIM [Concomitant]
     Indication: PROPHYLAXIS
  14. PREDNISOLONE. [Concomitant]
     Active Substance: PREDNISOLONE
     Indication: IMMUNOSUPPRESSION
     Dosage: (15 MG/DAY, 50 MG/D?0.6 MG/KG ON POSTOPERATIVE DAY FOLLOWED BY TAPERING)
  15. TEICOPLANIN [Concomitant]
     Active Substance: TEICOPLANIN
     Indication: PROPHYLAXIS
  16. ANIDULAFUNGIN [Concomitant]
     Active Substance: ANIDULAFUNGIN
     Indication: ANTIFUNGAL PROPHYLAXIS
     Dosage: 100 MG, 1X/DAY
     Route: 051
  17. CEFTOLOZANE;TAZOBACTAM [Concomitant]
     Active Substance: CEFTOLOZANE SULFATE\TAZOBACTAM SODIUM
     Indication: PROPHYLAXIS

REACTIONS (1)
  - Drug ineffective [Fatal]
